FAERS Safety Report 5847412-7 (Version None)
Quarter: 2008Q3

REPORT INFORMATION
  Report Type: 
  Country: None (occurrence: None)
  Receive Date: 20080813
  Receipt Date: 20080805
  Transmission Date: 20090109
  Serious: Yes (Hospitalization)
  Sender: FDA-Public Use
  Company Number: GXKR2008GB07346

PATIENT
  Age: 41 Year
  Sex: 0

DRUGS (19)
  1. SIMVASTATIN [Suspect]
     Indication: BLOOD CHOLESTEROL INCREASED
     Dosage: 40 MG, ORAL
     Route: 048
  2. ZITHROMAX [Suspect]
     Indication: URINARY TRACT INFECTION
     Dosage: 40 MG, ORAL
     Route: 048
  3. AMITRIPTLINE HYDROCHLORIDE TAB [Concomitant]
  4. ACETYLSALICYLIC ACID SRT [Concomitant]
  5. AZATHIOPRINE [Concomitant]
  6. BETAHISTINE (BETAHISTINE) [Concomitant]
  7. CEPHALEXIN [Concomitant]
  8. CYCLOSPORINE [Concomitant]
  9. DIAZEPAM [Concomitant]
  10. FLUDROCORTISONE ACETATE [Concomitant]
  11. FOLIC ACID [Concomitant]
  12. INSULIN GLARGINE (INSULIN GLARGINE) [Concomitant]
  13. LANSOPRAZOLE [Concomitant]
  14. METOPROLOL TARTRATE [Concomitant]
  15. MOVICOL (MACROGOL, POTASSIUM CHLORIDE, SODIUM BICARBONATE, SODIUM CHLO [Concomitant]
  16. NOVORAPID (INSULIN ASPART) [Concomitant]
  17. PREDNISOLONE [Concomitant]
  18. QUININE SULPHATE (QUININE SULFATE) [Concomitant]
  19. SODIUM BICARBONATE IN PLASTIC CONTAINER [Concomitant]

REACTIONS (2)
  - DRUG INTERACTION [None]
  - RHABDOMYOLYSIS [None]
